FAERS Safety Report 14181056 (Version 5)
Quarter: 2018Q4

REPORT INFORMATION
  Report Type: Report from Study
  Country: BR (occurrence: BR)
  Receive Date: 20171111
  Receipt Date: 20181211
  Transmission Date: 20190204
  Serious: Yes (Hospitalization)
  Sender: FDA-Public Use
  Company Number: BR-UCBSA-2017044665

PATIENT
  Age: 5 Year
  Sex: Female
  Weight: 34 kg

DRUGS (13)
  1. KEPPRA [Suspect]
     Active Substance: LEVETIRACETAM
     Indication: EPILEPSY
     Dosage: 1 ML, 3X/DAY (TID)
     Route: 048
     Dates: start: 200811
  2. CARBAMAZEPINE. [Concomitant]
     Active Substance: CARBAMAZEPINE
     Indication: EPILEPSY
     Dosage: UNK, 3X/DAY (TID)
     Route: 048
     Dates: start: 2015
  3. RIVOTRIL [Concomitant]
     Active Substance: CLONAZEPAM
     Indication: EPILEPSY
     Dosage: 0.25 MG, 3X/DAY (TID)
  4. LEVETIRACETAM. [Suspect]
     Active Substance: LEVETIRACETAM
     Indication: EPILEPSY
     Dosage: 500 MG, 3X/DAY (TID)
     Route: 048
     Dates: start: 2014, end: 2016
  5. CARBAMAZEPINE. [Concomitant]
     Active Substance: CARBAMAZEPINE
     Indication: EPILEPSY
     Dosage: 400 MG, 3X/DAY (TID)
     Route: 048
     Dates: start: 2016
  6. DEPAKENE [Concomitant]
     Active Substance: VALPROIC ACID
     Indication: EPILEPSY
     Dosage: 250 MG, 3X/DAY (TID)
     Route: 048
     Dates: start: 20030814
  7. DEPAKENE [Concomitant]
     Active Substance: VALPROIC ACID
     Dosage: 500 MG, ONCE DAILY (QD)
     Route: 048
     Dates: start: 20030814
  8. KEPPRA [Suspect]
     Active Substance: LEVETIRACETAM
     Dosage: 5 ML, 3X/DAY (TID)
     Route: 048
  9. RIVOTRIL [Concomitant]
     Active Substance: CLONAZEPAM
     Dosage: 2 MG, ONCE DAILY (QD)
     Route: 048
     Dates: start: 20030814
  10. LEVETIRACETAM. [Suspect]
     Active Substance: LEVETIRACETAM
     Dosage: 250 MG, 3X/DAY (TID)
     Route: 048
     Dates: start: 2016
  11. LEVETIRACETAM. [Suspect]
     Active Substance: LEVETIRACETAM
     Dosage: 250 MG, 3X/DAY (TID)
     Route: 048
     Dates: start: 2016
  12. DEPAKENE [Concomitant]
     Active Substance: VALPROIC ACID
     Dosage: 500 MG, 3X/DAY (TID)
     Route: 048
     Dates: start: 2003
  13. DEPAKENE [Concomitant]
     Active Substance: VALPROIC ACID
     Indication: EPILEPSY
     Dosage: 300 MG, 3X/DAY (TID)

REACTIONS (10)
  - Thyroid disorder [Recovered/Resolved]
  - Malnutrition [Not Recovered/Not Resolved]
  - Dyspepsia [Recovering/Resolving]
  - Liver disorder [Recovered/Resolved]
  - Off label use [Unknown]
  - Vitamin D deficiency [Recovered/Resolved]
  - Seizure [Not Recovered/Not Resolved]
  - Epilepsy [Unknown]
  - Nausea [Recovered/Resolved]
  - Renal disorder [Recovered/Resolved]

NARRATIVE: CASE EVENT DATE: 200811
